FAERS Safety Report 5254773-9 (Version None)
Quarter: 2007Q1

REPORT INFORMATION
  Report Type: 
  Country: None (occurrence: None)
  Receive Date: 20070301
  Receipt Date: 20070301
  Transmission Date: 20070707
  Serious: No
  Sender: FDA-Public Use
  Company Number: None

PATIENT

DRUGS (1)
  1. APLISOL [Suspect]
     Indication: TUBERCULIN TEST
     Dosage: 5 TU  ONCE  ID
     Route: 023
     Dates: start: 20070109, end: 20070225

REACTIONS (3)
  - FALSE POSITIVE TUBERCULOSIS TEST [None]
  - HEPATIC ENZYME INCREASED [None]
  - PHARMACEUTICAL PRODUCT COMPLAINT [None]
